FAERS Safety Report 7936188-5 (Version None)
Quarter: 2011Q4

REPORT INFORMATION
  Report Type: 
  Country: None (occurrence: None)
  Receive Date: 20111123
  Receipt Date: 20111118
  Transmission Date: 20120403
  Serious: Yes (Hospitalization)
  Sender: FDA-Public Use
  Company Number: IT-PFIZER INC-2011285460

PATIENT
  Age: 46 Year
  Sex: Male

DRUGS (1)
  1. CARDURA [Suspect]
     Indication: HYPERTENSION
     Dosage: 4 MG, DAILY
     Route: 048
     Dates: start: 20110801, end: 20110803

REACTIONS (3)
  - COLD SWEAT [None]
  - TACHYCARDIA [None]
  - DYSPNOEA [None]
